FAERS Safety Report 4799697-6 (Version None)
Quarter: 2005Q4

REPORT INFORMATION
  Report Type: 
  Country: None (occurrence: None)
  Receive Date: 20051013
  Receipt Date: 20050927
  Transmission Date: 20060501
  Serious: Yes (Disabling)
  Sender: FDA-Public Use
  Company Number: 2005135607

PATIENT
  Age: 65 Year
  Sex: Male
  Weight: 120 kg

DRUGS (5)
  1. ACCUPRIL [Suspect]
     Indication: HYPERTENSION
     Dosage: 20 MG (20 MG DAILY)   3 YEARS
  2. AVANDIA [Concomitant]
  3. DIAFORMIN (METFORMIN HYDROCHLORIDE) [Concomitant]
  4. LOSEC (OMEPRAZOLE) [Concomitant]
  5. BRUFEN (IBUPROFEN) [Concomitant]

REACTIONS (6)
  - BACK PAIN [None]
  - CONTUSION [None]
  - MOVEMENT DISORDER [None]
  - MUSCLE SPASMS [None]
  - MUSCULOSKELETAL STIFFNESS [None]
  - OEDEMA PERIPHERAL [None]
